FAERS Safety Report 6557304-6 (Version None)
Quarter: 2010Q1

REPORT INFORMATION
  Report Type: 
  Country: None (occurrence: None)
  Receive Date: 20100129
  Receipt Date: 20100119
  Transmission Date: 20100710
  Serious: Yes (Hospitalization)
  Sender: FDA-Public Use
  Company Number: GB-RANBAXY-2009RR-30298

PATIENT
  Sex: Female

DRUGS (20)
  1. FLUOXETINE [Suspect]
     Indication: MAJOR DEPRESSION
     Route: 064
  2. MORPHINE SULFATE INJ [Suspect]
     Indication: MYELITIS TRANSVERSE
     Dosage: 15 MG, PRN
     Route: 064
  3. MORPHINE SULFATE INJ [Suspect]
     Indication: NEURALGIA
  4. TRAMADOL [Suspect]
     Indication: MYELITIS TRANSVERSE
     Dosage: 100 MG, QID
     Route: 064
  5. TRAMADOL [Suspect]
     Indication: NEURALGIA
  6. TRIFLUOPERAZINE [Suspect]
     Indication: MAJOR DEPRESSION
     Route: 064
  7. GABAPENTIN [Suspect]
     Indication: NEURALGIA
     Dosage: 1.8 G, UNK
     Route: 064
  8. AMITRIPTYLINE HCL [Suspect]
     Indication: NEURALGIA
     Dosage: 25 MG, QD
     Route: 064
  9. AMITRIPTYLINE HCL [Suspect]
     Indication: MYELITIS TRANSVERSE
  10. HEPARIN [Concomitant]
     Dosage: 5000 IU, BID
     Route: 064
  11. IMMUNE GLOBULIN INTRAVENOUS (HUMAN) [Concomitant]
     Dosage: 42 MG, QD
     Route: 064
  12. ISOFLURANE [Concomitant]
     Route: 064
  13. METHYLPREDNISOLONE [Concomitant]
     Dosage: 1 G, QD
     Route: 064
  14. NITROUS OXIDE [Concomitant]
     Route: 064
  15. PARACETAMOL [Concomitant]
     Dosage: 1 G, QID
     Route: 064
  16. RANITIDINE [Concomitant]
     Dosage: 150 MG, QD
     Route: 064
  17. ROCURONIUM [Concomitant]
     Dosage: 60 MG, QD
     Route: 064
  18. SODIUM CITRATE [Concomitant]
     Dosage: 30 ML, QD
     Route: 064
  19. THIOPENTAL SODIUM [Concomitant]
     Dosage: 450 MG, QD
     Route: 064
  20. VITAMIN B-12 [Concomitant]
     Dosage: 1 MG, QD
     Route: 064

REACTIONS (3)
  - APNOEA [None]
  - DRUG EXPOSURE DURING PREGNANCY [None]
  - DRUG WITHDRAWAL SYNDROME [None]
